FAERS Safety Report 4571411-9 (Version None)
Quarter: 2005Q1

REPORT INFORMATION
  Report Type: 
  Country: None (occurrence: None)
  Receive Date: 20050205
  Receipt Date: 20040920
  Transmission Date: 20050727
  Serious: Yes (Other)
  Sender: FDA-Public Use
  Company Number: PHEH2004US10204

PATIENT
  Age: 53 Year
  Sex: Male
  Weight: 68 kg

DRUGS (11)
  1. CORMAX [Concomitant]
     Dosage: UNK, BID
     Dates: start: 20010301
  2. ELOCON [Concomitant]
     Dosage: UNK, QD
     Route: 061
     Dates: start: 20020301, end: 20020501
  3. PSORCON [Concomitant]
     Dosage: UNK, BID
     Dates: start: 19970101
  4. ZONALON [Concomitant]
     Dosage: UNK, QHS
     Dates: start: 20031101
  5. METROGEL [Concomitant]
     Dates: start: 20021201
  6. KLARON [Concomitant]
     Dates: start: 20031201
  7. PROTOPIC [Suspect]
     Indication: DERMATITIS ATOPIC
     Dosage: INTERMITTENTLY
     Dates: start: 20031218, end: 20040323
  8. LIDA-MANTLE [Concomitant]
     Dosage: UNK, Q2H
     Dates: start: 20040301, end: 20040801
  9. DICLOXACILLIN [Concomitant]
     Dosage: 500 MG, Q6H
     Dates: start: 20040806, end: 20040818
  10. DICLOXACILLIN [Concomitant]
     Dosage: 500 MG, Q6H
     Route: 048
     Dates: start: 20040413, end: 20040427
  11. ELIDEL [Suspect]
     Indication: DERMATITIS ATOPIC
     Dosage: INTERMITTENTLY
     Route: 061
     Dates: start: 20040314, end: 20040917

REACTIONS (11)
  - CANDIDIASIS [None]
  - CELLULITIS [None]
  - DERMATITIS INFECTED [None]
  - HERPES VIRUS INFECTION [None]
  - LYMPHADENOPATHY [None]
  - MASS [None]
  - PERIPHERAL T-CELL LYMPHOMA UNSPECIFIED [None]
  - RASH ERYTHEMATOUS [None]
  - SERRATIA INFECTION [None]
  - SKIN NECROSIS [None]
  - STAPHYLOCOCCAL INFECTION [None]
